FAERS Safety Report 4390423-1 (Version None)
Quarter: 2004Q2

REPORT INFORMATION
  Report Type: 
  Country: None (occurrence: None)
  Receive Date: 20040630
  Receipt Date: 20040618
  Transmission Date: 20050107
  Serious: Yes (Hospitalization)
  Sender: FDA-Public Use
  Company Number: 2004220109US

PATIENT
  Age: 42 Year
  Sex: Female

DRUGS (2)
  1. CAMPTOSAR [Suspect]
     Indication: BREAST CANCER METASTATIC
     Dates: start: 20031113
  2. COMPARATOR-GEMCITABINE (GEMCITABINE) INJECTION [Suspect]
     Indication: BREAST CANCER METASTATIC
     Dates: start: 20031113

REACTIONS (1)
  - PANCREATITIS [None]
